FAERS Safety Report 7715893-X (Version None)
Quarter: 2011Q3

REPORT INFORMATION
  Report Type: 
  Country: None (occurrence: None)
  Receive Date: 20110829
  Receipt Date: 20110829
  Transmission Date: 20111222
  Serious: Yes (Hospitalization, Disabling)
  Sender: FDA-Public Use
  Company Number: None

PATIENT
  Age: 20 Year
  Sex: Male
  Weight: 64.41 kg

DRUGS (2)
  1. RISPERIDONE [Suspect]
     Indication: AUTISM
     Dosage: 3MG
     Route: 048
     Dates: start: 19970601, end: 20110828
  2. RISPERIDONE [Suspect]
     Indication: IRRITABILITY
     Dosage: 3MG
     Route: 048
     Dates: start: 19970601, end: 20110828

REACTIONS (1)
  - ERECTION INCREASED [None]
